FAERS Safety Report 8017698-1 (Version None)
Quarter: 2012Q1

REPORT INFORMATION
  Report Type: 
  Country: None (occurrence: None)
  Receive Date: 20120103
  Receipt Date: 20111221
  Transmission Date: 20120608
  Serious: Yes (Other)
  Sender: FDA-Public Use
  Company Number: CA-JNJFOC-20111212228

PATIENT
  Sex: Male

DRUGS (6)
  1. REMICADE [Suspect]
     Dates: start: 20110901
  2. INSULIN [Concomitant]
  3. REMICADE [Suspect]
     Indication: CROHN'S DISEASE
     Dates: start: 20111031, end: 20111031
  4. METHOTREXATE [Concomitant]
  5. AVAPRO [Concomitant]
  6. CRESTOR [Concomitant]

REACTIONS (1)
  - INTESTINAL OPERATION [None]
